FAERS Safety Report 10086948 (Version 2)
Quarter: 2014Q2

REPORT INFORMATION
  Report Type: Spontaneous
  Country: US (occurrence: US)
  Receive Date: 20140418
  Receipt Date: 20140428
  Transmission Date: 20141212
  Serious: Yes (Other)
  Sender: FDA-Public Use
  Company Number: US-BAXTER-2014BAX018802

PATIENT
  Sex: Female
  Weight: 74 kg

DRUGS (2)
  1. DIANEAL LOW CALCIUM [Suspect]
     Indication: RENAL FAILURE CHRONIC
     Route: 033
     Dates: end: 201401
  2. DIANEAL LOW CALCIUM [Suspect]
     Route: 033
     Dates: start: 201403

REACTIONS (2)
  - Transplant failure [Unknown]
  - Peritoneal effluent abnormal [Recovered/Resolved]
